FAERS Safety Report 7194038-1 (Version None)
Quarter: 2010Q4

REPORT INFORMATION
  Report Type: 
  Country: None (occurrence: None)
  Receive Date: 20101223
  Receipt Date: 20100915
  Transmission Date: 20110411
  Serious: No
  Sender: FDA-Public Use
  Company Number: US-AMGEN-TCS431563

PATIENT

DRUGS (5)
  1. ENBREL [Suspect]
     Indication: PSORIASIS
     Dosage: 50 MG, 2 TIMES/WK
     Route: 030
     Dates: start: 20100726, end: 20100902
  2. CLONAZEPAM [Concomitant]
     Dosage: 5 MG, UNK
     Route: 048
  3. THYROID [Concomitant]
     Dosage: UNK UNK, UNK
     Route: 048
  4. CLOBETASOL [Concomitant]
     Indication: PSORIASIS
     Dosage: UNK UNK, UNK
     Route: 061
  5. UNSPECIFIED HORMONE REPLACEMENT THERAPY AGENT [Concomitant]
     Dosage: UNK UNK, UNK
     Route: 048

REACTIONS (9)
  - DRUG INEFFECTIVE [None]
  - FATIGUE [None]
  - INJECTION SITE ERYTHEMA [None]
  - INJECTION SITE HAEMATOMA [None]
  - INJECTION SITE INDURATION [None]
  - INJECTION SITE PAIN [None]
  - INJECTION SITE REACTION [None]
  - INJECTION SITE SWELLING [None]
  - INJECTION SITE WARMTH [None]
